FAERS Safety Report 10447265 (Version 1)
Quarter: 2014Q3

REPORT INFORMATION
  Report Type: Spontaneous
  Country: FR (occurrence: None)
  Receive Date: 20140909
  Receipt Date: 20140909
  Transmission Date: 20150326
  Serious: Yes (Hospitalization)
  Sender: FDA-Public Use
  Company Number: FR-016919

PATIENT
  Age: 66 Year
  Sex: Male

DRUGS (12)
  1. MICARDIS [Concomitant]
     Active Substance: TELMISARTAN
  2. ATORVASTATINE /01326101/ (ATORVASTATINE) (NOT SPECIFIED) [Concomitant]
     Active Substance: ATORVASTATIN
  3. PARACETAMOL [Concomitant]
     Active Substance: ACETAMINOPHEN
  4. VITAMIN B6 [Concomitant]
     Active Substance: PYRIDOXINE HYDROCHLORIDE
  5. ALPRAZOLAM. [Concomitant]
     Active Substance: ALPRAZOLAM
  6. FIRMAGON [Suspect]
     Active Substance: DEGARELIX ACETATE
     Indication: PROSTATE CANCER
     Dosage: (1 DF 1X/MONTH)
     Dates: start: 201306
  7. XATRAL [Suspect]
     Active Substance: ALFUZOSIN
     Indication: PRODUCT USED FOR UNKNOWN INDICATION
     Route: 048
     Dates: start: 20140121, end: 20140723
  8. LACTULOSE. [Concomitant]
     Active Substance: LACTULOSE
  9. CORGARD [Concomitant]
     Active Substance: NADOLOL
  10. VITAMIN B1 [Concomitant]
     Active Substance: THIAMINE HYDROCHLORIDE
  11. KARDEGIC [Concomitant]
     Active Substance: ASPIRIN LYSINE
  12. AMOXICILLIN CLAVULANIC ACID [Concomitant]
     Active Substance: AMOXICILLIN\CLAVULANIC ACID

REACTIONS (3)
  - Syncope [None]
  - Torsade de pointes [None]
  - Electrocardiogram QT prolonged [None]

NARRATIVE: CASE EVENT DATE: 20140722
